FAERS Safety Report 4309778-9 (Version None)
Quarter: 2004Q1

REPORT INFORMATION
  Report Type: 
  Country: None (occurrence: None)
  Receive Date: 20040301
  Receipt Date: 20040219
  Transmission Date: 20041129
  Serious: Yes (Hospitalization)
  Sender: FDA-Public Use
  Company Number: US-JNJFOC-20030905199

PATIENT
  Age: 68 Year
  Sex: Female
  Weight: 43.9989 kg

DRUGS (5)
  1. DITROPAN XL [Suspect]
     Indication: POLLAKIURIA
     Dosage: SEE IMAGE
     Route: 048
     Dates: start: 20020901
  2. DITROPAN XL [Suspect]
     Indication: POLLAKIURIA
     Dosage: SEE IMAGE
     Route: 048
     Dates: start: 20021212
  3. PREMARIN [Concomitant]
  4. NORVASC [Concomitant]
  5. COPAXONE [Concomitant]

REACTIONS (8)
  - ACTIVITIES OF DAILY LIVING IMPAIRED [None]
  - ASTHENIA [None]
  - CONSTIPATION [None]
  - DRY MOUTH [None]
  - DYSPHAGIA [None]
  - MASTICATION DISORDER [None]
  - SPEECH DISORDER [None]
  - URINARY TRACT INFECTION [None]
